FAERS Safety Report 6293018-8 (Version None)
Quarter: 2009Q3

REPORT INFORMATION
  Report Type: 
  Country: None (occurrence: None)
  Receive Date: 20090729
  Receipt Date: 20090721
  Transmission Date: 20100115
  Serious: Yes (Hospitalization)
  Sender: FDA-Public Use
  Company Number: TCI2009A02849

PATIENT
  Age: 52 Year
  Sex: Male

DRUGS (2)
  1. LANSOPRAZOLE [Suspect]
  2. PLAVIX [Concomitant]

REACTIONS (6)
  - ACUTE MYOCARDIAL INFARCTION [None]
  - ACUTE RESPIRATORY DISTRESS SYNDROME [None]
  - CIRCULATORY COLLAPSE [None]
  - LUNG DISORDER [None]
  - PNEUMONIA [None]
  - POST PROCEDURAL COMPLICATION [None]
